FAERS Safety Report 7751630-0 (Version None)
Quarter: 2011Q3

REPORT INFORMATION
  Report Type: 
  Country: None (occurrence: None)
  Receive Date: 20110914
  Receipt Date: 20110908
  Transmission Date: 20111222
  Serious: Yes (Life-Threatening, Other)
  Sender: FDA-Public Use
  Company Number: DK-PFIZER INC-2011211742

PATIENT
  Age: 64 Year
  Sex: Female

DRUGS (4)
  1. SULFASALAZINE [Suspect]
     Indication: RHEUMATOID ARTHRITIS
     Dosage: UNK
     Dates: start: 20100608, end: 20100608
  2. METHOTREXATE [Concomitant]
     Dosage: UNK
     Route: 048
     Dates: start: 20091105, end: 20100608
  3. PREDNISOLONE [Concomitant]
     Dosage: UNK
     Dates: start: 20100427, end: 20100608
  4. NO SUBJECT DRUG [Suspect]
     Dosage: NO DOSE GIVEN

REACTIONS (2)
  - DIARRHOEA [None]
  - PNEUMONIA [None]
